FAERS Safety Report 7236456-9 (Version None)
Quarter: 2011Q1

REPORT INFORMATION
  Report Type: 
  Country: None (occurrence: None)
  Receive Date: 20110120
  Receipt Date: 20110110
  Transmission Date: 20110831
  Serious: Yes (Hospitalization, Other)
  Sender: FDA-Public Use
  Company Number: ES-ELI_LILLY_AND_COMPANY-ES201011002885

PATIENT
  Sex: Female
  Weight: 65 kg

DRUGS (6)
  1. DAFLON [Concomitant]
     Indication: CARDIOVASCULAR INSUFFICIENCY
     Dosage: 1000 MG, DAILY (1/D)
     Route: 048
  2. EBASTINE [Concomitant]
     Indication: HYPERSENSITIVITY
     Dosage: 10 MG, DAILY (1/D)
     Route: 048
  3. IDEOS [Concomitant]
     Indication: OSTEOPOROSIS
     Dosage: 2 D/F, DAILY (1/D)
     Route: 048
  4. FORTEO [Suspect]
     Indication: OSTEOPOROSIS
     Dosage: 20 UG, DAILY (1/D)
     Route: 058
     Dates: start: 20101019, end: 20101107
  5. PARIET [Concomitant]
     Indication: DUODENAL ULCER
     Dosage: 20 MG, DAILY (1/D)
     Route: 048
  6. TORSEMIDE [Concomitant]
     Indication: HYPERTENSION
     Dosage: 5 MG, DAILY (1/D)
     Route: 048

REACTIONS (5)
  - OEDEMA PERIPHERAL [None]
  - CHOLECYSTITIS [None]
  - CHOLELITHIASIS [None]
  - CYANOSIS [None]
  - ERYTHEMA [None]
